FAERS Safety Report 5367546-3 (Version None)
Quarter: 2007Q2

REPORT INFORMATION
  Report Type: 
  Country: None (occurrence: None)
  Receive Date: 20070622
  Receipt Date: 20061117
  Transmission Date: 20071010
  Serious: No
  Sender: FDA-Public Use
  Company Number: US-ASTRAZENECA-2006UW24820

PATIENT
  Age: 40 Year
  Sex: Female
  Weight: 46.3 kg

DRUGS (3)
  1. PULMICORT [Suspect]
     Indication: ASTHMA
     Dosage: 2 PUFFS QD
     Route: 055
     Dates: start: 20050101
  2. ALBUTEROL [Concomitant]
  3. DICYCLONIC [Concomitant]

REACTIONS (4)
  - ABDOMINAL DISTENSION [None]
  - COELIAC DISEASE [None]
  - DIARRHOEA [None]
  - PRURITUS [None]
